FAERS Safety Report 5482769-0 (Version None)
Quarter: 2007Q4

REPORT INFORMATION
  Report Type: 
  Country: None (occurrence: None)
  Receive Date: 20071011
  Receipt Date: 20070928
  Transmission Date: 20080405
  Serious: Yes (Death, Disabling, Other)
  Sender: FDA-Public Use
  Company Number: IE-PFIZER INC-2007034659

PATIENT
  Sex: Male
  Weight: 57.2 kg

DRUGS (15)
  1. LYRICA [Suspect]
     Indication: PAIN
     Dosage: DAILY DOSE:150MG
     Route: 048
     Dates: start: 20050801, end: 20070501
  2. DEXAMETHASONE 0.5MG TAB [Concomitant]
     Route: 048
  3. LANSOPRAZOLE [Concomitant]
     Route: 048
  4. CASODEX [Concomitant]
     Route: 048
  5. OXYCONTIN [Concomitant]
     Route: 048
  6. LEVAMIN [Concomitant]
  7. DETRUSITOL [Concomitant]
  8. DECAPEPTYL - SLOW RELEASE [Concomitant]
     Route: 058
  9. ACTIQ [Concomitant]
  10. AUGMENTIN '125' [Concomitant]
  11. KLACID [Concomitant]
  12. MACRODANTIN [Concomitant]
     Route: 048
  13. METHOTRIMEPRAZINE [Concomitant]
     Route: 048
  14. MOVICOL [Concomitant]
     Route: 048
  15. ZOMETA [Concomitant]
     Route: 042

REACTIONS (20)
  - BLOOD ALBUMIN DECREASED [None]
  - BLOOD ALKALINE PHOSPHATASE INCREASED [None]
  - BLOOD CALCIUM DECREASED [None]
  - BLOOD CREATININE INCREASED [None]
  - DEATH [None]
  - DELIRIUM [None]
  - GAMMA-GLUTAMYLTRANSFERASE INCREASED [None]
  - HAEMATOCRIT DECREASED [None]
  - HAEMOGLOBIN DECREASED [None]
  - HYDRONEPHROSIS [None]
  - HYPOACUSIS [None]
  - MEAN CELL HAEMOGLOBIN CONCENTRATION DECREASED [None]
  - MEAN CELL HAEMOGLOBIN DECREASED [None]
  - NASAL MUCOSAL DISORDER [None]
  - NIGHT BLINDNESS [None]
  - OPTIC NEURITIS [None]
  - PAPILLOEDEMA [None]
  - RED BLOOD CELL COUNT DECREASED [None]
  - VISION BLURRED [None]
  - WHITE BLOOD CELL COUNT INCREASED [None]
